FAERS Safety Report 11552320 (Version 1)
Quarter: 2015Q3

REPORT INFORMATION
  Report Type: Spontaneous
  Country: US (occurrence: None)
  Receive Date: 20150924
  Receipt Date: 20150924
  Transmission Date: 20151125
  Serious: No
  Sender: FDA-Public Use
  Company Number: None

PATIENT
  Age: 64 Year
  Sex: Male
  Weight: 80.74 kg

DRUGS (24)
  1. VITAMIN B12 [Concomitant]
     Active Substance: CYANOCOBALAMIN
  2. GLUGGULSTERONES [Concomitant]
  3. VITAMIN K2 [Concomitant]
     Active Substance: MENAQUINONE 6
  4. GYMNEMA [Concomitant]
  5. FENUGREEK POWDER [Concomitant]
  6. FISH OIL [Concomitant]
     Active Substance: FISH OIL
  7. GRAPESEED EXTRACT [Concomitant]
  8. SYLVESTRE [Concomitant]
  9. SIMVASTATIN. [Suspect]
     Active Substance: SIMVASTATIN
     Indication: CARDIOVASCULAR EVENT PROPHYLAXIS
     Dosage: TAKEN BY MOUTH
     Dates: start: 20100412, end: 20100630
  10. ARTICHOKE EXTRACT [Concomitant]
  11. BETA PHYTOSEROL [Concomitant]
  12. MILK THISTLE [Concomitant]
     Active Substance: MILK THISTLE
  13. LUTEIN [Concomitant]
     Active Substance: LUTEIN
  14. VITAMIN B 100 COMPLEX [Concomitant]
  15. ST. JOHN^S WORT [Concomitant]
     Active Substance: ST. JOHN^S WORT
  16. VITAMIN E [Concomitant]
     Active Substance: .ALPHA.-TOCOPHEROL
  17. COQ 10 [Concomitant]
     Active Substance: UBIDECARENONE
  18. CALCIUM [Concomitant]
     Active Substance: CALCIUM
  19. FLAX  SEED [Concomitant]
     Active Substance: FLAX SEED
  20. VITAMIN D3 [Concomitant]
     Active Substance: CHOLECALCIFEROL
  21. OLIVE LEAF EXTRACT [Concomitant]
  22. TURMERIC [Concomitant]
     Active Substance: TURMERIC
  23. VITAMIN C [Concomitant]
     Active Substance: ASCORBIC ACID
  24. CINNAMON. [Concomitant]
     Active Substance: CINNAMON

REACTIONS (4)
  - High density lipoprotein abnormal [None]
  - Abasia [None]
  - Blood triglycerides abnormal [None]
  - Neuropathy peripheral [None]

NARRATIVE: CASE EVENT DATE: 20100630
